FAERS Safety Report 6839017-6 (Version None)
Quarter: 2010Q3

REPORT INFORMATION
  Report Type: 
  Country: None (occurrence: None)
  Receive Date: 20100713
  Receipt Date: 20091201
  Transmission Date: 20110219
  Serious: No
  Sender: FDA-Public Use
  Company Number: US-PFIZER INC-2007038087

PATIENT
  Sex: Female
  Weight: 107 kg

DRUGS (17)
  1. CHANTIX [Suspect]
     Indication: SMOKING CESSATION THERAPY
     Dosage: UNK
     Dates: start: 20070201
  2. LORTAB [Suspect]
     Indication: SCOLIOSIS
     Dosage: 10 MG, UNK
  3. NEURONTIN [Concomitant]
  4. PREVACID [Concomitant]
  5. CLARITIN [Concomitant]
  6. DETROL LA [Concomitant]
  7. ZOLOFT [Concomitant]
  8. ZESTRIL [Concomitant]
  9. RESTORIL [Concomitant]
  10. CALCIUM CARBONATE [Concomitant]
  11. VITAMIN B12 FOR INJECTION [Concomitant]
  12. TIAZAC [Concomitant]
  13. KLONOPIN [Concomitant]
  14. ATIVAN [Concomitant]
  15. PROLIXIN [Concomitant]
     Dosage: 1 EVERY 2 WEEKS
  16. TRAMADOL [Concomitant]
  17. INSULIN [Concomitant]

REACTIONS (3)
  - COUGH [None]
  - SEDATION [None]
  - SOMNOLENCE [None]
